FAERS Safety Report 9124842 (Version 1)
Quarter: 2013Q1

REPORT INFORMATION
  Report Type: Spontaneous
  Country: US (occurrence: US)
  Receive Date: 20130227
  Receipt Date: 20130227
  Transmission Date: 20140127
  Serious: No
  Sender: FDA-Public Use
  Company Number: US-ASTRAZENECA-2013SE10797

PATIENT
  Age: 55 Year
  Sex: Female
  Weight: 74.8 kg

DRUGS (13)
  1. SEROQUEL [Suspect]
     Indication: AFFECTIVE DISORDER
     Route: 048
  2. SEROQUEL [Suspect]
     Indication: SLEEP DISORDER
     Route: 048
  3. SEROQUEL [Suspect]
     Indication: CYCLOTHYMIC DISORDER
     Route: 048
  4. SEROQUEL [Suspect]
     Indication: AFFECTIVE DISORDER
     Route: 048
     Dates: start: 2012, end: 2012
  5. SEROQUEL [Suspect]
     Indication: SLEEP DISORDER
     Route: 048
     Dates: start: 2012, end: 2012
  6. SEROQUEL [Suspect]
     Indication: CYCLOTHYMIC DISORDER
     Route: 048
     Dates: start: 2012, end: 2012
  7. SEROQUEL [Suspect]
     Indication: AFFECTIVE DISORDER
     Dosage: GENERIC, 300 MG DAILY
     Route: 048
     Dates: start: 2012
  8. SEROQUEL [Suspect]
     Indication: SLEEP DISORDER
     Dosage: GENERIC, 300 MG DAILY
     Route: 048
     Dates: start: 2012
  9. SEROQUEL [Suspect]
     Indication: CYCLOTHYMIC DISORDER
     Dosage: GENERIC, 300 MG DAILY
     Route: 048
     Dates: start: 2012
  10. SEROQUEL [Suspect]
     Indication: AFFECTIVE DISORDER
     Dosage: GENERIC, 400 MG DAILY
     Route: 048
     Dates: start: 2012
  11. SEROQUEL [Suspect]
     Indication: SLEEP DISORDER
     Dosage: GENERIC, 400 MG DAILY
     Route: 048
     Dates: start: 2012
  12. SEROQUEL [Suspect]
     Indication: CYCLOTHYMIC DISORDER
     Dosage: GENERIC, 400 MG DAILY
     Route: 048
     Dates: start: 2012
  13. T3 T4 (THYROID HORMONES) [Concomitant]
     Indication: THYROID DISORDER

REACTIONS (6)
  - Insomnia [Unknown]
  - Sleep disorder [Unknown]
  - Mood altered [Unknown]
  - Nervousness [Unknown]
  - Anxiety [Unknown]
  - Crying [Unknown]
